FAERS Safety Report 24890143 (Version 1)
Quarter: 2025Q1

REPORT INFORMATION
  Report Type: Spontaneous
  Country: US (occurrence: None)
  Receive Date: 20250124
  Receipt Date: 20250124
  Transmission Date: 20250408
  Serious: Yes (Hospitalization)
  Sender: FDA-CTU
  Company Number: None

PATIENT
  Age: 31 Year
  Sex: Male
  Weight: 77.6 kg

DRUGS (2)
  1. TECARTUS [Suspect]
     Active Substance: BREXUCABTAGENE AUTOLEUCEL
     Indication: B-cell type acute leukaemia
     Route: 041
     Dates: start: 20241022, end: 20241022
  2. Chimeric Antigen Receptor (CAR) T Cell Therapy Infusion Tecartus [Concomitant]
     Dates: start: 20241022, end: 20241022

REACTIONS (2)
  - Immune effector cell-associated neurotoxicity syndrome [None]
  - Brain oedema [None]

NARRATIVE: CASE EVENT DATE: 20241028
